FAERS Safety Report 9020887 (Version 1)
Quarter: 2013Q1

REPORT INFORMATION
  Report Type: Spontaneous
  Country: US (occurrence: US)
  Receive Date: 20130119
  Receipt Date: 20130119
  Transmission Date: 20140127
  Serious: No
  Sender: FDA-Public Use
  Company Number: US-009507513-1301USA004816

PATIENT
  Sex: 0

DRUGS (2)
  1. PEGINTRON [Suspect]
     Dosage: 150 MICROGRAM, UNK
  2. PEGINTRON [Suspect]
     Dosage: 120 MICROGRAM, UNK
     Dates: start: 20121109

REACTIONS (3)
  - Drug dose omission [Unknown]
  - Inappropriate schedule of drug administration [Unknown]
  - No adverse event [Unknown]
